FAERS Safety Report 7676390 (Version 3)
Quarter: 2013Q2

REPORT INFORMATION
  Report Type: Spontaneous
  Country: US (occurrence: US)
  Receive Date: 20101119
  Receipt Date: 20130422
  Transmission Date: 20140414
  Serious: Yes (Hospitalization, Other)
  Sender: FDA-Public Use
  Company Number: US-ROCHE-719235

PATIENT
  Age: 17 Year
  Sex: Male

DRUGS (1)
  1. ACCUTANE [Suspect]
     Indication: ACNE
     Route: 065
     Dates: start: 199308, end: 199402

REACTIONS (9)
  - Colitis ulcerative [Unknown]
  - Anal fistula [Unknown]
  - Inflammatory bowel disease [Unknown]
  - Pouchitis [Unknown]
  - Stress [Unknown]
  - Intestinal obstruction [Unknown]
  - Lip exfoliation [Unknown]
  - Localised infection [Unknown]
  - Iron deficiency anaemia [Unknown]
